FAERS Safety Report 22339894 (Version 1)
Quarter: 2023Q2

REPORT INFORMATION
  Report Type: Spontaneous
  Country: CA (occurrence: CA)
  Receive Date: 20230518
  Receipt Date: 20230518
  Transmission Date: 20230722
  Serious: Yes (Disabling, Other)
  Sender: FDA-Public Use
  Company Number: CA-002147023-NVSC2023CA112610

PATIENT
  Age: 58 Year
  Sex: Female

DRUGS (1)
  1. ZOLEDRONIC ACID [Suspect]
     Active Substance: ZOLEDRONIC ACID
     Indication: Osteoporosis
     Dosage: UNK, ONCE/SINGLE
     Route: 042

REACTIONS (4)
  - Hypokinesia [Unknown]
  - Headache [Unknown]
  - Peripheral swelling [Unknown]
  - Vomiting [Unknown]
